FAERS Safety Report 10201542 (Version 1)
Quarter: 2014Q2

REPORT INFORMATION
  Report Type: Spontaneous
  Country: DE (occurrence: FR)
  Receive Date: 20140528
  Receipt Date: 20140528
  Transmission Date: 20141212
  Serious: Yes (Disabling)
  Sender: FDA-Public Use
  Company Number: FR-MERZ PHARMACEUTICALS, LLC DRUG SAFETY-14MRZ-00195

PATIENT
  Age: 51 Year
  Sex: Female

DRUGS (1)
  1. AETHOXYSKLEROL [Suspect]
     Indication: VARICOSE VEIN
     Dosage: 1 INJECTION
     Route: 042
     Dates: start: 20140414, end: 20140414

REACTIONS (1)
  - Blindness transient [Recovered/Resolved]
